FAERS Safety Report 10682158 (Version 2)
Quarter: 2015Q1

REPORT INFORMATION
  Report Type: Spontaneous
  Country: JP (occurrence: JP)
  Receive Date: 20141230
  Receipt Date: 20150116
  Transmission Date: 20150720
  Serious: Yes (Other)
  Sender: FDA-Public Use
  Company Number: JP-LUNDBECK-DKLU1107164

PATIENT
  Age: 77 Year
  Sex: Male

DRUGS (7)
  1. NORTHERA [Suspect]
     Active Substance: DROXIDOPA
     Indication: PARKINSON^S DISEASE
     Route: 065
  2. MEROPENEM HYDRATE [Suspect]
     Active Substance: MEROPENEM
     Indication: URINARY TRACT INFECTION
     Route: 041
  3. LEVODOPA/CARBIDOPA HYDRATE [Concomitant]
     Indication: PARKINSON^S DISEASE
     Route: 048
  4. CEFMETAZOLE SODIUM [Concomitant]
     Active Substance: CEFMETAZOLE SODIUM
     Indication: URINARY TRACT INFECTION
     Route: 042
  5. ZOSYN [Concomitant]
     Active Substance: PIPERACILLIN SODIUM\TAZOBACTAM SODIUM
     Indication: URINARY TRACT INFECTION
     Route: 042
  6. ANTIDIARRHEALS, INTESTINAL REGULATORS [Concomitant]
     Indication: DIARRHOEA
     Route: 048
  7. VANCOMYCIN HYDROCHLORIDE. [Concomitant]
     Active Substance: VANCOMYCIN HYDROCHLORIDE
     Indication: URINARY TRACT INFECTION

REACTIONS (4)
  - Cardiac failure congestive [Unknown]
  - Pyrexia [Recovering/Resolving]
  - Neuroleptic malignant syndrome [Unknown]
  - Tremor [Unknown]

NARRATIVE: CASE EVENT DATE: 20140510
